FAERS Safety Report 4707866-6 (Version None)
Quarter: 2005Q3

REPORT INFORMATION
  Report Type: 
  Country: None (occurrence: None)
  Receive Date: 20050705
  Receipt Date: 20050705
  Transmission Date: 20060218
  Serious: Yes (Other)
  Sender: FDA-Public Use
  Company Number: None

PATIENT
  Age: 54 Year
  Sex: Male
  Weight: 121.2 kg

DRUGS (3)
  1. EZETIMIBE [Suspect]
     Indication: HYPERCHOLESTEROLAEMIA
     Dosage: 10MG  QD  PO
     Route: 048
     Dates: start: 20041001, end: 20050131
  2. ASPIRIN [Concomitant]
  3. NAPROXEN [Concomitant]

REACTIONS (2)
  - ABDOMINAL PAIN [None]
  - HEADACHE [None]
